FAERS Safety Report 4267213-3 (Version None)
Quarter: 2004Q1

REPORT INFORMATION
  Report Type: 
  Country: None (occurrence: None)
  Receive Date: 20040107
  Receipt Date: 20031225
  Transmission Date: 20041129
  Serious: Yes (Life-Threatening)
  Sender: FDA-Public Use
  Company Number: 2003JP007367

PATIENT
  Age: 63 Year
  Sex: Male
  Weight: 71 kg

DRUGS (9)
  1. PROGRAF [Suspect]
     Indication: RENAL TRANSPLANT
     Dosage: SEE IMAGE
     Dates: start: 20031113, end: 20031117
  2. PROGRAF [Suspect]
     Indication: RENAL TRANSPLANT
     Dosage: SEE IMAGE
     Dates: start: 20031112
  3. MEDROL [Suspect]
     Indication: RENAL TRANSPLANT
     Dosage: 20 MG, ORAL
     Route: 048
     Dates: start: 20031115
  4. CELLCEPT [Concomitant]
  5. SOLU-MEDROL [Concomitant]
  6. SIMULECT [Concomitant]
  7. LASIX [Concomitant]
  8. DIOVAN ^NOVARTIS^ (VALSARTAN) [Concomitant]
  9. HARNAL (TAMSULOSIN HYDROCHLORIDE) [Concomitant]

REACTIONS (6)
  - ACUTE MYOCARDIAL INFARCTION [None]
  - ARTERIAL THROMBOSIS [None]
  - DIABETES MELLITUS [None]
  - DRUG LEVEL INCREASED [None]
  - GRAFT THROMBOSIS [None]
  - SHUNT THROMBOSIS [None]
